FAERS Safety Report 11792756 (Version 1)
Quarter: 2015Q4

REPORT INFORMATION
  Report Type: Report from Study
  Country: US (occurrence: US)
  Receive Date: 20151202
  Receipt Date: 20151202
  Transmission Date: 20160305
  Serious: Yes (Hospitalization, Other)
  Sender: FDA-Public Use
  Company Number: US-ROCHE-1666869

PATIENT
  Age: 71 Year

DRUGS (3)
  1. CISPLATIN. [Suspect]
     Active Substance: CISPLATIN
     Indication: NON-SMALL CELL LUNG CANCER
     Dosage: 75 MG/M2 OVER 60 MIN ON DAY 1
     Route: 042
     Dates: start: 20090910
  2. VINORELBINE TARTRATE. [Suspect]
     Active Substance: VINORELBINE TARTRATE
     Indication: NON-SMALL CELL LUNG CANCER
     Dosage: 30 MG/M2/DAY OVER 10 MIN ON DAYS 1 AND 8
     Route: 042
     Dates: start: 20090910
  3. BEVACIZUMAB [Suspect]
     Active Substance: BEVACIZUMAB
     Indication: NON-SMALL CELL LUNG CANCER
     Dosage: 15MG/KG OVER 30 TO 90 MIN ON DAY 1. FROM CYCLE 4 ONWARDS, 15 MG/KG OVER 30 TO 90 MIN ON DAY 1 ONCE E
     Route: 042
     Dates: start: 20090910

REACTIONS (7)
  - Hypotension [Unknown]
  - Neutropenic infection [Unknown]
  - Syncope [Unknown]
  - Embolism [Unknown]
  - Hypophosphataemia [Unknown]
  - Large intestinal haemorrhage [Unknown]
  - Hypoalbuminaemia [Unknown]

NARRATIVE: CASE EVENT DATE: 20090919
